FAERS Safety Report 5178989-5 (Version None)
Quarter: 2006Q4

REPORT INFORMATION
  Report Type: 
  Country: None (occurrence: None)
  Receive Date: 20061213
  Receipt Date: 20061213
  Transmission Date: 20070319
  Serious: Yes (Life-Threatening, Hospitalization, Disabling)
  Sender: FDA-Public Use
  Company Number: None

PATIENT
  Age: 77 Year
  Sex: Female
  Weight: 55 kg

DRUGS (1)
  1. DEXTRAN INJ [Suspect]
     Indication: CAROTID ENDARTERECTOMY
     Dosage: 500 ML INFUSION BAG IV DRIP
     Route: 041
     Dates: start: 20060818, end: 20060818

REACTIONS (7)
  - BLOOD PRESSURE IMMEASURABLE [None]
  - ELECTROCARDIOGRAM ABNORMAL [None]
  - ELECTROMECHANICAL DISSOCIATION [None]
  - METABOLIC ACIDOSIS [None]
  - PROCEDURAL COMPLICATION [None]
  - RASH ERYTHEMATOUS [None]
  - RENAL FAILURE [None]
